FAERS Safety Report 21301845 (Version 1)
Quarter: 2022Q3

REPORT INFORMATION
  Report Type: Spontaneous
  Country: IN (occurrence: IN)
  Receive Date: 20220907
  Receipt Date: 20220907
  Transmission Date: 20221027
  Serious: Yes (Hospitalization)
  Sender: FDA-Public Use
  Company Number: IN-PFIZER INC-PV202200052819

PATIENT
  Age: 32 Year
  Sex: Female

DRUGS (2)
  1. TRANEXAMIC ACID [Suspect]
     Active Substance: TRANEXAMIC ACID
     Indication: Fibrinolysis increased
     Dosage: UNK
     Route: 037
  2. TRANEXAMIC ACID [Suspect]
     Active Substance: TRANEXAMIC ACID
     Indication: Spinal anaesthesia

REACTIONS (4)
  - Wrong product administered [Unknown]
  - Back pain [Unknown]
  - Musculoskeletal pain [Unknown]
  - Seizure [Unknown]
